FAERS Safety Report 4371796-2 (Version None)
Quarter: 2004Q2

REPORT INFORMATION
  Report Type: 
  Country: None (occurrence: None)
  Receive Date: 20040601
  Receipt Date: 20040517
  Transmission Date: 20050107
  Serious: Yes (Hospitalization)
  Sender: FDA-Public Use
  Company Number: S04-USA-02801-01

PATIENT
  Age: 89 Year
  Sex: Female

DRUGS (8)
  1. NAMENDA [Suspect]
     Indication: DEMENTIA ALZHEIMER'S TYPE
     Dosage: 10 MG BID PO
     Route: 048
     Dates: start: 20040501, end: 20040516
  2. NAMENDA [Suspect]
     Indication: DEMENTIA ALZHEIMER'S TYPE
     Dates: start: 20040301, end: 20040501
  3. TENORMIN [Concomitant]
  4. DYAZIDE [Concomitant]
  5. POTASSIUM [Concomitant]
  6. ARTHROTEC [Concomitant]
  7. ASPIRIN [Concomitant]
  8. MULTI-VITAMIN [Concomitant]

REACTIONS (5)
  - DIZZINESS [None]
  - DYSPNOEA [None]
  - FUNGAL SKIN INFECTION [None]
  - HYPOTENSION [None]
  - PYREXIA [None]
